FAERS Safety Report 6873590-7 (Version None)
Quarter: 2010Q3

REPORT INFORMATION
  Report Type: 
  Country: None (occurrence: None)
  Receive Date: 20100723
  Receipt Date: 20100720
  Transmission Date: 20110219
  Serious: Yes (Hospitalization, Other)
  Sender: FDA-Public Use
  Company Number: US-AMGEN-QUU395575

PATIENT
  Sex: Male
  Weight: 91.3 kg

DRUGS (1)
  1. NPLATE [Suspect]
     Indication: IDIOPATHIC THROMBOCYTOPENIC PURPURA
     Dates: start: 20091112, end: 20100107

REACTIONS (12)
  - ACUTE MYELOID LEUKAEMIA [None]
  - BIOPSY BONE MARROW ABNORMAL [None]
  - BLAST CELL COUNT INCREASED [None]
  - BLOOD BLISTER [None]
  - CHEST PAIN [None]
  - FATIGUE [None]
  - HAEMOPTYSIS [None]
  - MYELODYSPLASTIC SYNDROME [None]
  - MYELOPROLIFERATIVE DISORDER [None]
  - PAIN IN EXTREMITY [None]
  - STOMATITIS [None]
  - THROMBOCYTOPENIA [None]
